FAERS Safety Report 4588375-4 (Version None)
Quarter: 2005Q1

REPORT INFORMATION
  Report Type: 
  Country: None (occurrence: None)
  Receive Date: 20050222
  Receipt Date: 20050215
  Transmission Date: 20050727
  Serious: Yes (Other)
  Sender: FDA-Public Use
  Company Number: US-BRISTOL-MYERS SQUIBB COMPANY-12862611

PATIENT
  Age: 4 Decade
  Sex: Female

DRUGS (2)
  1. SUSTIVA [Suspect]
  2. MIDAZOLAM [Interacting]
     Indication: ANAESTHESIA

REACTIONS (2)
  - CARDIAC ARREST [None]
  - DRUG INTERACTION [None]
